FAERS Safety Report 9996307 (Version 1)
Quarter: 2014Q1

REPORT INFORMATION
  Report Type: Spontaneous
  Country: US (occurrence: None)
  Receive Date: 20140221
  Receipt Date: 20140221
  Transmission Date: 20141002
  Serious: Yes (Other)
  Sender: FDA-Public Use
  Company Number: 1000052451

PATIENT
  Age: 75 Year
  Sex: Male

DRUGS (3)
  1. TUDORZA PRESSAIR (ACLIDINIUM BROMIDE) (400 MCROGRAM, POWDER) [Suspect]
     Indication: EMPHYSEMA
     Dosage: 400 MCG (400 MCG, 2 IN 1 D) , ORAL
     Dates: start: 20131205
  2. DUONEB (COMBIVENT) [Suspect]
  3. DULERA (DULERA) (DULERA) [Concomitant]

REACTIONS (2)
  - Drug ineffective [None]
  - Potentiating drug interaction [None]
